FAERS Safety Report 9333722 (Version 1)
Quarter: 2013Q2

REPORT INFORMATION
  Report Type: Report from Study
  Country: AU (occurrence: AU)
  Receive Date: 20130606
  Receipt Date: 20130606
  Transmission Date: 20140414
  Serious: Yes (Hospitalization)
  Sender: FDA-Public Use
  Company Number: AU-ASTRAZENECA-2013SE28001

PATIENT
  Age: 72 Year
  Sex: Female

DRUGS (1)
  1. ARIMIDEX [Suspect]
     Route: 048
     Dates: start: 20110801

REACTIONS (4)
  - Dermatitis infected [Unknown]
  - Acarodermatitis [Unknown]
  - Atrial fibrillation [Unknown]
  - Rash pruritic [Unknown]
